FAERS Safety Report 6766840-9 (Version None)
Quarter: 2010Q2

REPORT INFORMATION
  Report Type: 
  Country: None (occurrence: None)
  Receive Date: 20100611
  Receipt Date: 20100531
  Transmission Date: 20101027
  Serious: Yes (Hospitalization)
  Sender: FDA-Public Use
  Company Number: NL-MEDIMMUNE-MEDI-0010524

PATIENT
  Sex: Male
  Weight: 6.6 kg

DRUGS (2)
  1. SYNAGIS [Suspect]
     Route: 030
     Dates: start: 20090915, end: 20100202
  2. SALBUTAMOL [Concomitant]
     Dosage: 2 PUFF
     Dates: start: 20091201

REACTIONS (5)
  - COUGH [None]
  - EAR INFECTION [None]
  - PNEUMONIA [None]
  - PYREXIA [None]
  - WHEEZING [None]
